FAERS Safety Report 23345335 (Version 1)
Quarter: 2023Q4

REPORT INFORMATION
  Report Type: Spontaneous
  Country: IT (occurrence: IT)
  Receive Date: 20231228
  Receipt Date: 20231228
  Transmission Date: 20240110
  Serious: Yes (Life-Threatening, Hospitalization, Other)
  Sender: FDA-Public Use
  Company Number: IT-BRISTOL-MYERS SQUIBB COMPANY-2023-186871

PATIENT
  Age: 75 Year
  Sex: Female
  Weight: 78 kg

DRUGS (5)
  1. ELIQUIS [Suspect]
     Active Substance: APIXABAN
     Indication: Product used for unknown indication
  2. SEMAGLUTIDE [Suspect]
     Active Substance: SEMAGLUTIDE
     Indication: Type 2 diabetes mellitus
     Route: 048
     Dates: start: 20191115, end: 20221202
  3. SEMAGLUTIDE [Suspect]
     Active Substance: SEMAGLUTIDE
     Route: 048
     Dates: start: 20191115, end: 20200628
  4. SEMAGLUTIDE [Suspect]
     Active Substance: SEMAGLUTIDE
     Route: 048
     Dates: start: 20200912, end: 20221202
  5. SEMAGLUTIDE [Suspect]
     Active Substance: SEMAGLUTIDE
     Route: 048
     Dates: start: 20221207

REACTIONS (6)
  - Blood loss anaemia [Recovered/Resolved]
  - Gastric ulcer [Recovered/Resolved]
  - Anastomotic ulcer [Recovered/Resolved]
  - Intestinal ischaemia [Unknown]
  - Melaena [Unknown]
  - Gastrointestinal pain [Unknown]

NARRATIVE: CASE EVENT DATE: 20210725
